FAERS Safety Report 8943298 (Version 1)
Quarter: 2012Q4

REPORT INFORMATION
  Report Type: 
  Country: JP (occurrence: JP)
  Receive Date: 20121204
  Receipt Date: 20121204
  Transmission Date: 20130627
  Serious: Yes (Hospitalization)
  Sender: FDA-Public Use
  Company Number: JP-009507513-1211JPN012606

PATIENT
  Age: 86 Year
  Sex: Female

DRUGS (3)
  1. JANUVIA TABLETS 50MG [Suspect]
     Indication: DIABETES MELLITUS
     Dosage: 50 mg, qd, duration: 2 year
     Route: 048
  2. AMARYL [Concomitant]
     Indication: DIABETES MELLITUS
     Dosage: Daily dosage unknown
     Route: 048
  3. GLYCORAN [Concomitant]
     Indication: DIABETES MELLITUS
     Dosage: Daily dosage unknown, Formulation: POR (unspecified)
     Route: 048

REACTIONS (1)
  - Ileus paralytic [Unknown]
